FAERS Safety Report 11593659 (Version 1)
Quarter: 2015Q4

REPORT INFORMATION
  Report Type: Spontaneous
  Country: US (occurrence: None)
  Receive Date: 20151002
  Receipt Date: 20151002
  Transmission Date: 20160304
  Serious: Yes (Hospitalization)
  Sender: FDA-Public Use
  Company Number: None

PATIENT
  Age: 73 Year
  Sex: Male
  Weight: 122.5 kg

DRUGS (2)
  1. GEMCITABINE HYDROCHLORIDE. [Suspect]
     Active Substance: GEMCITABINE HYDROCHLORIDE
     Dates: end: 20150916
  2. SUNITINIB MALATE. [Suspect]
     Active Substance: SUNITINIB MALATE
     Dates: end: 20150922

REACTIONS (5)
  - Dyspnoea [None]
  - Asthenia [None]
  - Cardiac failure congestive [None]
  - Pleural effusion [None]
  - Pulmonary oedema [None]

NARRATIVE: CASE EVENT DATE: 20150923
